FAERS Safety Report 18802048 (Version 2)
Quarter: 2021Q1

REPORT INFORMATION
  Report Type: Report from Study
  Country: CA (occurrence: CA)
  Receive Date: 20210128
  Receipt Date: 20210203
  Transmission Date: 20210419
  Serious: Yes (Other)
  Sender: FDA-Public Use
  Company Number: CA-GLAXOSMITHKLINE-CA2021AMR015301

PATIENT
  Age: 73 Year
  Sex: Female
  Weight: 104 kg

DRUGS (5)
  1. PREDNISONE. [Suspect]
     Active Substance: PREDNISONE
     Indication: PRODUCT USED FOR UNKNOWN INDICATION
     Dosage: 50 MG
     Dates: start: 2017
  2. INSPIOLTO [Suspect]
     Active Substance: OLODATEROL HYDROCHLORIDE\TIOTROPIUM BROMIDE MONOHYDRATE
     Indication: CHRONIC OBSTRUCTIVE PULMONARY DISEASE
     Dosage: 2 PUFF(S), QD
     Route: 055
  3. SALBUTAMOL SULPHATE [Suspect]
     Active Substance: ALBUTEROL SULFATE
     Indication: CHRONIC OBSTRUCTIVE PULMONARY DISEASE
     Dosage: 100 UG PRN
     Route: 055
  4. PREDNISONE. [Suspect]
     Active Substance: PREDNISONE
     Dosage: 5 MG, QD
  5. ALVESCO [Suspect]
     Active Substance: CICLESONIDE
     Indication: CHRONIC OBSTRUCTIVE PULMONARY DISEASE
     Dosage: 2 PUFF(S), BID
     Route: 055

REACTIONS (17)
  - Pneumonia [Unknown]
  - Dyspnoea [Unknown]
  - Lung hyperinflation [Unknown]
  - Loss of personal independence in daily activities [Unknown]
  - Dyspnoea exertional [Unknown]
  - Hypertension [Unknown]
  - Wheezing [Unknown]
  - Cystic lung disease [Unknown]
  - Therapeutic product effect incomplete [Unknown]
  - Pulmonary fibrosis [Unknown]
  - Emphysema [Unknown]
  - Infection [Unknown]
  - Sleep disorder due to a general medical condition [Unknown]
  - Chronic obstructive pulmonary disease [Unknown]
  - Pulmonary mass [Unknown]
  - Asthma [Unknown]
  - Blood count abnormal [Unknown]

NARRATIVE: CASE EVENT DATE: 2019
